FAERS Safety Report 17862237 (Version 1)
Quarter: 2020Q2

REPORT INFORMATION
  Report Type: Spontaneous
  Country: HR (occurrence: HR)
  Receive Date: 20200604
  Receipt Date: 20200604
  Transmission Date: 20200714
  Serious: Yes (Other)
  Sender: FDA-Public Use
  Company Number: HR-JNJFOC-20200603288

PATIENT
  Age: 83 Year
  Sex: Female

DRUGS (13)
  1. TRAJENTA [Concomitant]
     Active Substance: LINAGLIPTIN
     Dosage: 5 MG AT NOON
  2. NEBILET [Concomitant]
     Active Substance: NEBIVOLOL
     Dosage: 10MG
  3. ATORIS [Concomitant]
     Active Substance: ATORVASTATIN CALCIUM
     Dosage: 80MG
  4. SIOFOR [Concomitant]
     Active Substance: METFORMIN HYDROCHLORIDE
     Dosage: 850 + 0 + 850 MG
  5. FURSEMID [FUROSEMIDE] [Concomitant]
     Active Substance: FUROSEMIDE
     Dosage: 40MG
  6. RAWEL [Concomitant]
     Active Substance: INDAPAMIDE
     Dosage: 1 TBL
  7. RIVAROXABAN [Suspect]
     Active Substance: RIVAROXABAN
     Indication: CORONARY ARTERY DISEASE
     Dosage: 2 X 2.5 MG
     Route: 048
     Dates: start: 202004
  8. EBRANTIL [URAPIDIL] [Concomitant]
     Active Substance: URAPIDIL
     Dosage: 2 X 60MG
  9. ASPIRIN PROTECT 100 MG [Concomitant]
     Active Substance: ASPIRIN
  10. PRYLAR [Concomitant]
     Dosage: 10/10MG
  11. KALINOR [POTASSIUM CHLORIDE] [Concomitant]
     Active Substance: POTASSIUM CHLORIDE
     Dosage: 1/2 EFF
  12. ACIPAN [Concomitant]
     Active Substance: PANTOPRAZOLE SODIUM
     Dosage: 40MG
  13. GLICLADA [Concomitant]
     Active Substance: GLICLAZIDE
     Dosage: 60 MG IN THE MORNING

REACTIONS (2)
  - Product use in unapproved indication [Unknown]
  - Off label use [Unknown]

NARRATIVE: CASE EVENT DATE: 202004
